FAERS Safety Report 5583386-4 (Version None)
Quarter: 2008Q1

REPORT INFORMATION
  Report Type: 
  Country: None (occurrence: None)
  Receive Date: 20080107
  Receipt Date: 20071227
  Transmission Date: 20080703
  Serious: Yes (Death, Hospitalization)
  Sender: FDA-Public Use
  Company Number: DE-PFIZER INC-2007108572

PATIENT
  Sex: Female

DRUGS (1)
  1. SUTENT [Suspect]
     Indication: OVARIAN CANCER
     Dosage: DAILY DOSE:50MG
     Route: 048

REACTIONS (2)
  - HEPATIC FAILURE [None]
  - MULTI-ORGAN FAILURE [None]
